FAERS Safety Report 6936337-1 (Version None)
Quarter: 2010Q3

REPORT INFORMATION
  Report Type: 
  Country: None (occurrence: None)
  Receive Date: 20100818
  Receipt Date: 20100810
  Transmission Date: 20110219
  Serious: Yes (Other)
  Sender: FDA-Public Use
  Company Number: 2010SP043633

PATIENT
  Age: 19 Year
  Sex: Female
  Weight: 72.5755 kg

DRUGS (1)
  1. IMPLANON [Suspect]
     Indication: CONTRACEPTION
     Dosage: 68 MG;SUBD
     Route: 059
     Dates: start: 20090311

REACTIONS (2)
  - AMENORRHOEA [None]
  - NEPHROLITHIASIS [None]
